FAERS Safety Report 5468188-1 (Version None)
Quarter: 2007Q3

REPORT INFORMATION
  Report Type: 
  Country: None (occurrence: None)
  Receive Date: 20070926
  Receipt Date: 20070913
  Transmission Date: 20080115
  Serious: Yes (Hospitalization)
  Sender: FDA-Public Use
  Company Number: CA-ELI_LILLY_AND_COMPANY-CA200701001243

PATIENT
  Sex: Female

DRUGS (10)
  1. VITAMIN D [Concomitant]
  2. BETA BLOCKING AGENTS [Concomitant]
  3. FORTEO [Suspect]
     Indication: OSTEOPOROSIS
     Dosage: 20 UG, DAILY (1/D)
     Route: 058
     Dates: start: 20060301
  4. WARFARIN SODIUM [Concomitant]
  5. AMIODARONE HCL [Concomitant]
  6. SYMBICORT                               /CAN/ [Concomitant]
  7. BUDESONIDE [Concomitant]
  8. LEVOTHYROXINE SODIUM [Concomitant]
  9. VITAMIN A [Concomitant]
  10. NITROGLYCERIN [Concomitant]

REACTIONS (4)
  - ABASIA [None]
  - ARTHRALGIA [None]
  - ARTHRITIS [None]
  - PAIN IN EXTREMITY [None]
